FAERS Safety Report 14940920 (Version 1)
Quarter: 2018Q2

REPORT INFORMATION
  Report Type: Spontaneous
  Country: KR (occurrence: KR)
  Receive Date: 20180525
  Receipt Date: 20180525
  Transmission Date: 20180711
  Serious: Yes (Life-Threatening, Hospitalization, Other)
  Sender: FDA-Public Use
  Company Number: KR-BRISTOL-MYERS SQUIBB COMPANY-BMS-2018-045530

PATIENT
  Age: 41 Year
  Sex: Male

DRUGS (1)
  1. ATAZANAVIR SULFATE. [Suspect]
     Active Substance: ATAZANAVIR SULFATE
     Indication: HIV INFECTION
     Dosage: 1 DF, UNK
     Route: 065

REACTIONS (7)
  - Atrioventricular block first degree [Unknown]
  - Intentional overdose [Unknown]
  - Ventricular tachycardia [Recovered/Resolved]
  - Electrocardiogram QT prolonged [Recovering/Resolving]
  - Blood creatinine increased [Unknown]
  - Hyperbilirubinaemia [Recovering/Resolving]
  - Suicide attempt [Unknown]
